FAERS Safety Report 11935064 (Version 1)
Quarter: 2016Q1

REPORT INFORMATION
  Report Type: Spontaneous
  Country: None (occurrence: None)
  Receive Date: 20160120
  Receipt Date: 20160120
  Transmission Date: 20160526
  Serious: No
  Sender: FDA-Public Use
  Company Number: None

PATIENT
  Age: 55 Year
  Sex: Male

DRUGS (7)
  1. HUMALOG [Concomitant]
     Active Substance: INSULIN LISPRO
  2. LIDOCAINE 5% [Suspect]
     Active Substance: LIDOCAINE
     Indication: ARTHRALGIA
     Dosage: LESS THAN ONE OUNCE, THREE TIMES DAILY, APPLIED TO SURFACE, USUALLY THE SKIN
     Dates: start: 20160108, end: 20160113
  3. LIDOCAINE 5% [Suspect]
     Active Substance: LIDOCAINE
     Indication: RHEUMATOID ARTHRITIS
     Dosage: LESS THAN ONE OUNCE, THREE TIMES DAILY, APPLIED TO SURFACE, USUALLY THE SKIN
     Dates: start: 20160108, end: 20160113
  4. LANTUS [Concomitant]
     Active Substance: INSULIN GLARGINE
  5. MVI [Concomitant]
     Active Substance: VITAMINS
  6. TOPAMAX [Concomitant]
     Active Substance: TOPIRAMATE
  7. METFORMIN [Concomitant]
     Active Substance: METFORMIN HYDROCHLORIDE

REACTIONS (3)
  - Application site erythema [None]
  - Rash pruritic [None]
  - Application site rash [None]

NARRATIVE: CASE EVENT DATE: 20160112
